FAERS Safety Report 8048283-3 (Version None)
Quarter: 2011Q4

REPORT INFORMATION
  Report Type: 
  Country: None (occurrence: None)
  Receive Date: 20111209
  Receipt Date: 20110916
  Transmission Date: 20120403
  Serious: No
  Sender: FDA-Public Use
  Company Number: 2011SP044011

PATIENT
  Age: 54 Year
  Sex: Female

DRUGS (4)
  1. PEGASYS [Suspect]
     Indication: HEPATITIS C
     Dates: start: 20110101
  2. VICTRELIS [Suspect]
     Indication: HEPATITIS C
     Dosage: 800 MG;TID; PO
     Route: 048
     Dates: start: 20110826
  3. PEG-INTRON [Suspect]
     Indication: HEPATITIS C
     Dates: start: 20110101
  4. RIBAVIRIN [Suspect]
     Indication: HEPATITIS C
     Dates: start: 20110101

REACTIONS (2)
  - RASH [None]
  - CONDITION AGGRAVATED [None]
